FAERS Safety Report 25382856 (Version 4)
Quarter: 2025Q4

REPORT INFORMATION
  Report Type: Spontaneous
  Country: CA (occurrence: CA)
  Receive Date: 20250602
  Receipt Date: 20251015
  Transmission Date: 20260117
  Serious: Yes (Disabling, Other)
  Sender: NOVO NORDISK
  Company Number: CA-NOVOPROD-1439324

PATIENT
  Age: 55 Year
  Sex: Male
  Weight: 80 kg

DRUGS (7)
  1. OZEMPIC [Suspect]
     Active Substance: SEMAGLUTIDE
     Indication: Product used for unknown indication
     Dosage: 1 MG, QW
     Route: 058
     Dates: start: 202202
  2. DAPAGLIFLOZIN [Suspect]
     Active Substance: DAPAGLIFLOZIN
     Indication: Product used for unknown indication
     Dosage: 10MG
     Route: 048
  3. CANDESARTAN [Concomitant]
     Active Substance: CANDESARTAN
     Indication: Product used for unknown indication
     Dosage: 4MG
     Route: 048
  4. METFORMIN [Concomitant]
     Active Substance: METFORMIN HYDROCHLORIDE
     Indication: Product used for unknown indication
     Dosage: 500MG
     Route: 048
     Dates: start: 2012
  5. PREGABALIN [Concomitant]
     Active Substance: PREGABALIN
     Indication: Product used for unknown indication
     Dosage: 50MG
     Route: 048
     Dates: start: 202401
  6. GLICLAZIDE [Concomitant]
     Active Substance: GLICLAZIDE
  7. DAPAGLIFLOZIN [Concomitant]
     Active Substance: DAPAGLIFLOZIN
     Dosage: UNK

REACTIONS (2)
  - Optic neuritis [Not Recovered/Not Resolved]
  - Blindness [Not Recovered/Not Resolved]
